FAERS Safety Report 9661073 (Version 1)
Quarter: 2013Q4

REPORT INFORMATION
  Report Type: Spontaneous
  Country: US (occurrence: US)
  Receive Date: 20131031
  Receipt Date: 20131031
  Transmission Date: 20140711
  Serious: Yes (Other)
  Sender: FDA-Public Use
  Company Number: US-JNJFOC-20131015100

PATIENT
  Sex: 0

DRUGS (2)
  1. KETOCONAZOLE [Suspect]
     Indication: ENZYME INHIBITION
     Dosage: ONCE DAILY FROM CYCLE 1, DAY 19 THROUGH CYCLE 2, DAY 21
     Route: 048
  2. BRENTUXIMAB VEDOTIN [Interacting]
     Indication: HAEMATOLOGICAL MALIGNANCY
     Dosage: DAY 1 OF TWO 21 DAY CYCLES OVER 30 MINUTES
     Route: 042

REACTIONS (9)
  - Neutropenia [Unknown]
  - Diarrhoea [Unknown]
  - Headache [Unknown]
  - Pyrexia [Unknown]
  - Vomiting [Unknown]
  - Pruritus [Unknown]
  - Fatigue [Unknown]
  - Drug interaction [Unknown]
  - Nausea [Unknown]
